FAERS Safety Report 16174890 (Version 1)
Quarter: 2019Q2

REPORT INFORMATION
  Report Type: Spontaneous
  Country: IT (occurrence: IT)
  Receive Date: 20190409
  Receipt Date: 20190409
  Transmission Date: 20190711
  Serious: Yes (Hospitalization)
  Sender: FDA-Public Use
  Company Number: IT-BAUSCH-BL-2019-010204

PATIENT
  Age: 64 Year
  Sex: Male

DRUGS (13)
  1. MELPHALAN. [Suspect]
     Active Substance: MELPHALAN
     Indication: NON-HODGKIN^S LYMPHOMA
     Route: 065
  2. CYTARABINE. [Suspect]
     Active Substance: CYTARABINE
     Indication: NON-HODGKIN^S LYMPHOMA
     Route: 065
  3. IBRUTINIB [Suspect]
     Active Substance: IBRUTINIB
     Indication: NON-HODGKIN^S LYMPHOMA
     Route: 065
  4. PLATINUM [Suspect]
     Active Substance: PLATINUM
     Indication: NON-HODGKIN^S LYMPHOMA
     Route: 065
  5. RITUXIMAB. [Suspect]
     Active Substance: RITUXIMAB
     Indication: NON-HODGKIN^S LYMPHOMA
     Route: 065
  6. ETOPOSIDE. [Suspect]
     Active Substance: ETOPOSIDE
     Indication: NON-HODGKIN^S LYMPHOMA
     Route: 065
  7. MITOXANTRONE [Suspect]
     Active Substance: MITOXANTRONE HYDROCHLORIDE
     Indication: NON-HODGKIN^S LYMPHOMA
     Route: 065
  8. FOTEMUSTINE [Suspect]
     Active Substance: FOTEMUSTINE
     Indication: NON-HODGKIN^S LYMPHOMA
     Route: 065
  9. BORTEZOMIB. [Suspect]
     Active Substance: BORTEZOMIB
     Indication: NON-HODGKIN^S LYMPHOMA
     Route: 065
  10. CYCLOPHOSPHAMIDE. [Suspect]
     Active Substance: CYCLOPHOSPHAMIDE
     Indication: NON-HODGKIN^S LYMPHOMA
     Route: 065
  11. DEXAMETHASONE. [Suspect]
     Active Substance: DEXAMETHASONE
     Indication: NON-HODGKIN^S LYMPHOMA
     Dosage: UNK
     Route: 065
  12. FLUDARABINE [Suspect]
     Active Substance: FLUDARABINE PHOSPHATE
     Indication: NON-HODGKIN^S LYMPHOMA
     Route: 065
  13. LENALIDOMIDE [Suspect]
     Active Substance: LENALIDOMIDE
     Indication: NON-HODGKIN^S LYMPHOMA
     Route: 065

REACTIONS (2)
  - Product use in unapproved indication [Unknown]
  - Pulmonary tuberculosis [Recovering/Resolving]
